FAERS Safety Report 24639816 (Version 1)
Quarter: 2024Q4

REPORT INFORMATION
  Report Type: Spontaneous
  Country: US (occurrence: US)
  Receive Date: 20241120
  Receipt Date: 20241120
  Transmission Date: 20250115
  Serious: No
  Sender: ALVOGEN
  Company Number: US-ALVOGEN-2024093053

PATIENT
  Sex: Female

DRUGS (1)
  1. TERIPARATIDE [Suspect]
     Active Substance: TERIPARATIDE
     Indication: Osteoporosis
     Dosage: EXP. DATE: 31-OCT-2024?USED ONLY THREE DOSES
     Dates: start: 20240201, end: 20240203

REACTIONS (3)
  - Rhinorrhoea [Recovered/Resolved]
  - Gait disturbance [Recovered/Resolved]
  - Muscle spasms [Recovered/Resolved]

NARRATIVE: CASE EVENT DATE: 20240201
